FAERS Safety Report 9128042 (Version 1)
Quarter: 2013Q1

REPORT INFORMATION
  Report Type: Spontaneous
  Country: US (occurrence: US)
  Receive Date: 20130122
  Receipt Date: 20130122
  Transmission Date: 20140127
  Serious: Yes (Other)
  Sender: FDA-Public Use
  Company Number: US-RB-048408-13

PATIENT
  Age: 63 Year
  Sex: Female

DRUGS (3)
  1. MUCINEX D [Suspect]
     Indication: PRODUCT USED FOR UNKNOWN INDICATION
     Route: 048
  2. MUCINEX D [Suspect]
  3. LOVANOX [Concomitant]
     Indication: PRODUCT USED FOR UNKNOWN INDICATION
     Route: 040

REACTIONS (3)
  - Epistaxis [Recovered/Resolved]
  - Injection site haemorrhage [Unknown]
  - Incorrect drug administration duration [Unknown]
